FAERS Safety Report 9086423 (Version 1)
Quarter: 2013Q1

REPORT INFORMATION
  Report Type: Spontaneous
  Country: US (occurrence: US)
  Receive Date: 20130131
  Receipt Date: 20130131
  Transmission Date: 20140127
  Serious: No
  Sender: FDA-Public Use
  Company Number: US-ABBOTT-12P-163-0995527-00

PATIENT
  Sex: Female

DRUGS (2)
  1. HUMIRA [Suspect]
     Indication: ECZEMA
     Route: 058
     Dates: start: 2011
  2. HUMIRA [Suspect]
     Indication: PSORIASIS

REACTIONS (2)
  - Off label use [Unknown]
  - Eczema [Unknown]
